FAERS Safety Report 15156230 (Version 1)
Quarter: 2018Q3

REPORT INFORMATION
  Report Type: Report from Study
  Country: DE (occurrence: DE)
  Receive Date: 20180717
  Receipt Date: 20180717
  Transmission Date: 20181010
  Serious: Yes (Life-Threatening, Other)
  Sender: FDA-Public Use
  Company Number: PHNU2000DE01033

PATIENT
  Age: 65 Year
  Sex: Female

DRUGS (19)
  1. RINGERS SOLUTION [Concomitant]
     Active Substance: CALCIUM CHLORIDE\POTASSIUM CHLORIDE\SODIUM CHLORIDE
     Indication: VOLUME BLOOD DECREASED
     Dosage: 500 ML, UNK
     Route: 042
     Dates: start: 19990819, end: 19990823
  2. PRAXITEN [Suspect]
     Active Substance: OXAZEPAM
     Indication: RESTLESSNESS
     Dosage: 10
     Route: 048
     Dates: start: 19990819, end: 19990823
  3. CORVATON [Suspect]
     Active Substance: MOLSIDOMINE
     Indication: MYOCARDIAL INFARCTION
     Dosage: 1 DF, UNK
     Route: 048
     Dates: start: 19990820, end: 19990820
  4. MARCUMAR [Suspect]
     Active Substance: PHENPROCOUMON
     Indication: THROMBOSIS PROPHYLAXIS
     Dosage: 1 DF, QD
     Route: 048
     Dates: start: 19990821
  5. GLUCOSE [Suspect]
     Active Substance: DEXTROSE
     Indication: VOLUME BLOOD DECREASED
     Dosage: 500 MG, QD
     Route: 042
     Dates: start: 19990820, end: 19990823
  6. ESIDREX [Suspect]
     Active Substance: HYDROCHLOROTHIAZIDE
     Indication: CARDIAC FAILURE
     Dosage: 0.5 MG, QD
     Route: 048
     Dates: start: 19990823, end: 19990830
  7. BACTRIM [Suspect]
     Active Substance: SULFAMETHOXAZOLE\TRIMETHOPRIM
     Indication: URINARY TRACT INFECTION
     Dosage: 1 DF, QD
     Route: 048
     Dates: start: 19990823, end: 19990828
  8. ZYLORIC [Suspect]
     Active Substance: ALLOPURINOL
     Indication: HYPERURICAEMIA
     Dosage: 150 MG, QD
     Route: 048
     Dates: start: 19990820, end: 19990826
  9. LASIX [Suspect]
     Active Substance: FUROSEMIDE
     Indication: CARDIAC FAILURE
     Dosage: 10 MG, QD
     Route: 042
     Dates: start: 19990820, end: 19990823
  10. LIQUEMIN N [Suspect]
     Active Substance: HEPARIN SODIUM
     Indication: THROMBOSIS PROPHYLAXIS
     Dosage: UNK
     Route: 042
     Dates: start: 19990819, end: 19990820
  11. ARELIX [Suspect]
     Active Substance: PIRETANIDE
     Indication: CARDIAC FAILURE
     Dosage: 1 DF, QD
     Route: 048
  12. REMESTAN [Suspect]
     Active Substance: TEMAZEPAM
     Indication: RESTLESSNESS
     Dosage: 1 DF, QD
     Route: 048
     Dates: start: 19990819, end: 19990823
  13. LASIX [Suspect]
     Active Substance: FUROSEMIDE
     Dosage: 2 DF, QD
     Route: 048
     Dates: start: 19990823, end: 19990830
  14. BIFITERAL [Suspect]
     Active Substance: LACTULOSE
     Indication: CONSTIPATION
     Dosage: 30 ML, QD
     Route: 048
     Dates: start: 19990820
  15. ASPIRIN. [Suspect]
     Active Substance: ASPIRIN
     Indication: THROMBOSIS PROPHYLAXIS
     Dosage: 100 MG, QD
     Route: 048
     Dates: start: 19990819
  16. NITRO [Suspect]
     Active Substance: NITROGLYCERIN
     Indication: MYOCARDIAL INFARCTION
     Dosage: 2 MG, QH
     Route: 042
     Dates: start: 19990819, end: 19990820
  17. ANTRA [Suspect]
     Active Substance: OMEPRAZOLE
     Indication: PROPHYLAXIS AGAINST GASTROINTESTINAL ULCER
     Dosage: 20 MG, QD
     Route: 048
     Dates: start: 19990819, end: 19990831
  18. KCL [Suspect]
     Active Substance: POTASSIUM CHLORIDE
     Indication: HYPOKALAEMIA
     Dosage: UNK
     Route: 042
     Dates: start: 19990819, end: 19990823
  19. LIQUEMIN N [Suspect]
     Active Substance: HEPARIN SODIUM
     Dosage: 1000 IU, QD
     Route: 058
     Dates: start: 19990821, end: 19990826

REACTIONS (11)
  - Rhinitis [Unknown]
  - Stevens-Johnson syndrome [Recovering/Resolving]
  - Mucosal erosion [Unknown]
  - Blood creatinine increased [Unknown]
  - Urinary tract infection [Unknown]
  - Blood urea increased [Unknown]
  - Rash pruritic [Unknown]
  - Conjunctivitis [Unknown]
  - Urogenital disorder [Unknown]
  - Lip haemorrhage [Unknown]
  - Toxic epidermal necrolysis [Unknown]

NARRATIVE: CASE EVENT DATE: 19990820
